FAERS Safety Report 8288430-1 (Version None)
Quarter: 2012Q2

REPORT INFORMATION
  Report Type: 
  Country: None (occurrence: None)
  Receive Date: 20120416
  Receipt Date: 20120403
  Transmission Date: 20120825
  Serious: Yes (Disabling, Other)
  Sender: FDA-Public Use
  Company Number: ZA-BAXTER-2012BAX000132

PATIENT
  Sex: Female
  Weight: 56 kg

DRUGS (4)
  1. TAXOTERE [Suspect]
     Indication: CHEMOTHERAPY
     Dates: start: 20080827, end: 20081027
  2. FLUOROURACIL [Suspect]
     Indication: CHEMOTHERAPY
     Dates: start: 20080711, end: 20080731
  3. EPIRUBICIN [Suspect]
     Indication: CHEMOTHERAPY
     Dates: start: 20080711, end: 20080731
  4. CYCLOPHOSPHAMIDE [Suspect]
     Indication: BREAST CANCER
     Route: 042
     Dates: start: 20080711, end: 20080731

REACTIONS (3)
  - THROMBOPHLEBITIS [None]
  - INJECTION SITE EXTRAVASATION [None]
  - ALOPECIA [None]
